FAERS Safety Report 17724047 (Version 1)
Quarter: 2020Q2

REPORT INFORMATION
  Report Type: Spontaneous
  Country: US (occurrence: US)
  Receive Date: 20200429
  Receipt Date: 20200429
  Transmission Date: 20200714
  Serious: No
  Sender: FDA-Public Use
  Company Number: US-ALKERMES INC.-ALK-2020-001753

PATIENT
  Age: 54 Year
  Sex: Male

DRUGS (1)
  1. VIVITROL [Suspect]
     Active Substance: NALTREXONE
     Indication: ALCOHOLISM
     Dosage: 380 MG, QMO
     Route: 030

REACTIONS (4)
  - Peripheral swelling [Not Recovered/Not Resolved]
  - Injection site reaction [Not Recovered/Not Resolved]
  - Swelling face [Not Recovered/Not Resolved]
  - Injection site oedema [Not Recovered/Not Resolved]

NARRATIVE: CASE EVENT DATE: 20200424
